FAERS Safety Report 11100237 (Version 1)
Quarter: 2015Q2

REPORT INFORMATION
  Report Type: Spontaneous
  Country: US (occurrence: None)
  Receive Date: 20150507
  Receipt Date: 20150507
  Transmission Date: 20150821
  Serious: Yes (Other)
  Sender: FDA-Public Use
  Company Number: None

PATIENT
  Age: 60 Year
  Sex: Female
  Weight: 68.04 kg

DRUGS (17)
  1. C-TESTOSTERONE CREAM [Concomitant]
  2. GROUND FLAX [Concomitant]
  3. VIT. D-3 [Concomitant]
  4. ASPRIN [Concomitant]
     Active Substance: ASPIRIN
  5. SPIRULINA [Concomitant]
     Active Substance: SPIRULINA
  6. MINIVELLE [Suspect]
     Active Substance: ESTRADIOL
     Indication: MENOPAUSE
     Dosage: 2 PATCHES  1 SUN. + 1 WED.  APPLIED AS MEDICATED PATCH TO SKIN
     Route: 062
     Dates: start: 20130531, end: 20150506
  7. METOPROLOL [Concomitant]
     Active Substance: METOPROLOL
  8. PROLIA [Concomitant]
     Active Substance: DENOSUMAB
  9. NUTRITIONAL YEAST SUPPLEMENT [Concomitant]
     Active Substance: DIETARY SUPPLEMENT
  10. OMEGA 3 CAPS [Concomitant]
  11. POTASSIUM GLUCONATE [Concomitant]
     Active Substance: POTASSIUM GLUCONATE
  12. PRILOSEC [Concomitant]
     Active Substance: OMEPRAZOLE MAGNESIUM
  13. PROBIOTICS [Concomitant]
     Active Substance: PROBIOTICS NOS
  14. VALSARTAN. [Concomitant]
     Active Substance: VALSARTAN
  15. GLUCOSAMINE + CHONDROITIN [Concomitant]
  16. FOLIC ACID. [Concomitant]
     Active Substance: FOLIC ACID
  17. NORETHINDRONE. [Concomitant]
     Active Substance: NORETHINDRONE

REACTIONS (2)
  - Product substitution issue [None]
  - Product quality issue [None]

NARRATIVE: CASE EVENT DATE: 20150505
